FAERS Safety Report 7825207-2 (Version None)
Quarter: 2011Q4

REPORT INFORMATION
  Report Type: 
  Country: None (occurrence: None)
  Receive Date: 20111019
  Receipt Date: 20111014
  Transmission Date: 20120403
  Serious: No
  Sender: FDA-Public Use
  Company Number: US-PFIZER INC-2010165162

PATIENT
  Age: 37 Year
  Sex: Female
  Weight: 68.027 kg

DRUGS (1)
  1. IBUPROFEN (ADVIL) [Suspect]
     Indication: HEADACHE
     Dosage: 2 TABLETS, UNK
     Route: 048
     Dates: start: 20101001, end: 20101001

REACTIONS (1)
  - VOMITING [None]
